FAERS Safety Report 8369160-4 (Version None)
Quarter: 2012Q2

REPORT INFORMATION
  Report Type: 
  Country: None (occurrence: None)
  Receive Date: 20120518
  Receipt Date: 20120508
  Transmission Date: 20120825
  Serious: Yes (Hospitalization)
  Sender: FDA-Public Use
  Company Number: KR-ABBOTT-12P-090-0922568-00

PATIENT
  Age: 65 Year
  Sex: Male
  Weight: 67 kg

DRUGS (13)
  1. KALETRA [Suspect]
     Indication: HIV INFECTION
     Route: 048
     Dates: start: 20100503
  2. MECKOOL [Concomitant]
     Indication: PROPHYLAXIS OF NAUSEA AND VOMITING
     Dosage: DAILY
     Route: 042
     Dates: start: 20110318, end: 20110321
  3. SMOFILPID [Concomitant]
     Indication: PARENTERAL NUTRITION
     Dosage: DAILY
     Route: 042
     Dates: start: 20110318, end: 20110319
  4. MACPERAN [Concomitant]
     Indication: PROPHYLAXIS OF NAUSEA AND VOMITING
     Dosage: DAILY
     Route: 048
     Dates: start: 20100705
  5. GLAMIN [Concomitant]
     Indication: PARENTERAL NUTRITION
     Dosage: DAILY
     Route: 042
     Dates: start: 20110319, end: 20110321
  6. 3-TC COMPLEX [Concomitant]
     Indication: ANTIRETROVIRAL THERAPY
     Dosage: DAILY
     Route: 048
     Dates: start: 20100503
  7. SPATAM [Concomitant]
     Indication: PROPHYLAXIS
     Dosage: DAILY
     Route: 042
     Dates: start: 20110319, end: 20110321
  8. CEFRIAXONE [Concomitant]
     Indication: NASOPHARYNGITIS
  9. TRIZEL [Concomitant]
     Indication: INFECTION PROPHYLAXIS
     Dosage: DAILY
     Route: 042
     Dates: start: 20110320, end: 20110321
  10. CEFRIAXONE [Concomitant]
     Indication: PROPHYLAXIS
     Dosage: DAILY
     Route: 042
     Dates: start: 20110318, end: 20110318
  11. SPATAM [Concomitant]
     Indication: NASOPHARYNGITIS
  12. CIROK [Concomitant]
     Indication: INFECTION PROPHYLAXIS
     Dosage: DAILY
     Route: 048
     Dates: start: 20110321, end: 20110328
  13. FLASINYL [Concomitant]
     Indication: INFECTION PROPHYLAXIS
     Dosage: DAILY
     Route: 048
     Dates: start: 20110321, end: 20110328

REACTIONS (4)
  - DIARRHOEA [None]
  - INSOMNIA [None]
  - GENERAL PHYSICAL HEALTH DETERIORATION [None]
  - NAUSEA [None]
